FAERS Safety Report 23994019 (Version 1)
Quarter: 2024Q2

REPORT INFORMATION
  Report Type: Spontaneous
  Country: ZA (occurrence: None)
  Receive Date: 20240620
  Receipt Date: 20240620
  Transmission Date: 20240715
  Serious: Yes (Hospitalization)
  Sender: FDA-Public Use
  Company Number: 2024A138997

PATIENT
  Age: 21549 Day
  Sex: Female

DRUGS (9)
  1. DAPAGLIFLOZIN PROPANEDIOL [Suspect]
     Active Substance: DAPAGLIFLOZIN PROPANEDIOL
     Route: 048
  2. HUMALOG MIX50/50 [Concomitant]
     Active Substance: INSULIN LISPRO
     Route: 058
  3. INDAPAMIDE [Concomitant]
     Active Substance: INDAPAMIDE
     Route: 048
  4. LIPOGEN [Concomitant]
     Route: 048
  5. PANTOPRAZOLE SODIUM [Concomitant]
     Active Substance: PANTOPRAZOLE SODIUM
     Route: 048
  6. METFORMIN HYDROCHLORIDE [Concomitant]
     Active Substance: METFORMIN HYDROCHLORIDE
     Route: 048
  7. HUMALOG MIX 50 CART 100 IU [Concomitant]
     Dosage: 50 CART 100 IU,,
     Route: 058
  8. ASPIRIN [Concomitant]
     Active Substance: ASPIRIN
     Route: 048
  9. CARVEDILOL [Concomitant]
     Active Substance: CARVEDILOL
     Route: 048

REACTIONS (3)
  - Syncope [Unknown]
  - Nausea [Unknown]
  - Influenza [Unknown]
